FAERS Safety Report 6077653-8 (Version None)
Quarter: 2009Q1

REPORT INFORMATION
  Report Type: 
  Country: None (occurrence: None)
  Receive Date: 20090213
  Receipt Date: 20090204
  Transmission Date: 20090719
  Serious: Yes (Other)
  Sender: FDA-Public Use
  Company Number: US-JNJFOC-20070405720

PATIENT
  Sex: Female
  Weight: 61.24 kg

DRUGS (4)
  1. REMICADE [Suspect]
     Indication: ARTHRITIS ENTEROPATHIC
     Route: 042
  2. REMICADE [Suspect]
     Indication: CROHN'S DISEASE
     Route: 042
  3. AZATHIOPRINE [Concomitant]
  4. METHOTREXATE [Concomitant]

REACTIONS (1)
  - B-CELL LYMPHOMA [None]
